FAERS Safety Report 9322686 (Version 4)
Quarter: 2013Q4

REPORT INFORMATION
  Report Type: Spontaneous
  Country: US (occurrence: US)
  Receive Date: 20130601
  Receipt Date: 20131220
  Transmission Date: 20140711
  Serious: Yes (Hospitalization, Disabling, Other)
  Sender: FDA-Public Use
  Company Number: US-ASTRAZENECA-2013SE38640

PATIENT
  Age: 70 Year
  Sex: Female
  Weight: 106.6 kg

DRUGS (9)
  1. NEXIUM [Suspect]
     Indication: GASTROOESOPHAGEAL REFLUX DISEASE
     Route: 048
     Dates: start: 1998, end: 201104
  2. NEXIUM [Suspect]
     Indication: GASTROOESOPHAGEAL REFLUX DISEASE
     Route: 048
     Dates: start: 1999, end: 2000
  3. NEXIUM [Suspect]
     Indication: GASTROOESOPHAGEAL REFLUX DISEASE
     Route: 048
     Dates: start: 20020805, end: 201204
  4. TUMS [Concomitant]
     Dosage: ONCE OR TWICE A WEEK
  5. FOLIC ACID [Concomitant]
  6. IRON [Concomitant]
  7. TYLENOL [Concomitant]
  8. PREVACID [Concomitant]
     Indication: GASTROOESOPHAGEAL REFLUX DISEASE
     Dosage: ONCE A DAY
     Dates: start: 200208
  9. MIACALCIN [Concomitant]
     Dosage: 200 UNIT/ACT SOLUTION 1 PUFF PER DAY

REACTIONS (20)
  - Wrist fracture [Unknown]
  - Gastrointestinal haemorrhage [Unknown]
  - Pneumonia [Unknown]
  - Vomiting [Unknown]
  - Joint injury [Unknown]
  - Osteoporosis [Unknown]
  - Spinal compression fracture [Unknown]
  - Lumbar vertebral fracture [Unknown]
  - Bone disorder [Unknown]
  - Multiple fractures [Unknown]
  - Calcium deficiency [Unknown]
  - Cataract [Unknown]
  - Arthritis [Unknown]
  - Vitamin D deficiency [Unknown]
  - Fall [Unknown]
  - Intervertebral disc degeneration [Unknown]
  - Osteopenia [Unknown]
  - Osteoarthritis [Unknown]
  - Sacroiliitis [Unknown]
  - Intervertebral disc protrusion [Unknown]
